FAERS Safety Report 8021807-8 (Version None)
Quarter: 2012Q1

REPORT INFORMATION
  Report Type: 
  Country: None (occurrence: None)
  Receive Date: 20120104
  Receipt Date: 20111229
  Transmission Date: 20120608
  Serious: No
  Sender: FDA-Public Use
  Company Number: US-BAYER-2011-124575

PATIENT
  Sex: Female

DRUGS (2)
  1. YAZ [Suspect]
     Dosage: 1 DF, CONT
     Route: 048
  2. INOSITOL [Concomitant]
     Indication: STRESS

REACTIONS (1)
  - STRESS [None]
